FAERS Safety Report 24238776 (Version 1)
Quarter: 2024Q3

REPORT INFORMATION
  Report Type: Spontaneous
  Country: SE (occurrence: SE)
  Receive Date: 20240822
  Receipt Date: 20240822
  Transmission Date: 20241016
  Serious: Yes (Hospitalization)
  Sender: TEVA
  Company Number: None

PATIENT
  Age: 82 Year
  Sex: Male

DRUGS (2)
  1. NAPROXEN [Suspect]
     Active Substance: NAPROXEN
     Indication: Arthralgia
     Route: 065
     Dates: end: 20240605
  2. CLOPIDOGREL [Concomitant]
     Active Substance: CLOPIDOGREL BISULFATE
     Indication: Product used for unknown indication
     Route: 065

REACTIONS (3)
  - Haematemesis [Recovered/Resolved]
  - Melaena [Recovered/Resolved]
  - Gastric ulcer [Recovered/Resolved]

NARRATIVE: CASE EVENT DATE: 20240605
